FAERS Safety Report 18839812 (Version 1)
Quarter: 2021Q1

REPORT INFORMATION
  Report Type: Spontaneous
  Country: JP (occurrence: JP)
  Receive Date: 20210204
  Receipt Date: 20210204
  Transmission Date: 20210419
  Serious: No
  Sender: FDA-Public Use
  Company Number: JP-EXELIXIS-CABO-20035239

PATIENT
  Age: 79 Year
  Sex: Male

DRUGS (3)
  1. METOCLOPRAMIDE. [Concomitant]
     Active Substance: METOCLOPRAMIDE
     Dosage: UNK
     Route: 065
  2. CABOMETYX [Suspect]
     Active Substance: CABOZANTINIB S-MALATE
     Indication: RENAL CELL CARCINOMA
     Dosage: 40 MG
     Route: 048
     Dates: start: 20200716
  3. SYMPROIC [Concomitant]
     Active Substance: NALDEMEDINE
     Dosage: UNK
     Route: 065

REACTIONS (1)
  - Musculoskeletal pain [Recovering/Resolving]

NARRATIVE: CASE EVENT DATE: 20201020
